FAERS Safety Report 14470486 (Version 2)
Quarter: 2018Q1

REPORT INFORMATION
  Report Type: Spontaneous
  Country: LT (occurrence: LT)
  Receive Date: 20180131
  Receipt Date: 20180226
  Transmission Date: 20180509
  Serious: Yes (Life-Threatening, Hospitalization, Other)
  Sender: FDA-Public Use
  Company Number: PHHY2017LT189920

PATIENT
  Age: 53 Year
  Sex: Female

DRUGS (9)
  1. TIANEPTINE [Concomitant]
     Active Substance: TIANEPTINE
     Indication: DEPRESSION
  2. BETALOC ZOK [Concomitant]
     Active Substance: METOPROLOL SUCCINATE
     Indication: HYPERTENSION
     Route: 048
     Dates: start: 2016
  3. EPINEPHRINE HCL [Suspect]
     Active Substance: EPINEPHRINE
     Indication: CARDIO-RESPIRATORY ARREST
     Route: 065
  4. DEXAMETHASONE. [Concomitant]
     Active Substance: DEXAMETHASONE
     Indication: PREMEDICATION
     Dosage: 4 MG (8 TABLETS), DAILY
     Route: 048
     Dates: start: 2016
  5. FOLIC ACID. [Concomitant]
     Active Substance: FOLIC ACID
     Indication: PREMEDICATION
     Dosage: 1000 MG, QD
     Route: 042
  6. ANGIOCELL [Interacting]
     Active Substance: SHARK CARTILAGE\SHARK, UNSPECIFIED
     Indication: PRODUCT USED FOR UNKNOWN INDICATION
     Dosage: 7.5 ML, QD
     Route: 048
     Dates: start: 2016
  7. TIANEPTINE [Concomitant]
     Active Substance: TIANEPTINE
     Indication: PAIN MANAGEMENT
     Route: 048
     Dates: start: 2016
  8. CYANOCOBALAMIN. [Concomitant]
     Active Substance: CYANOCOBALAMIN
     Indication: PREMEDICATION
     Dosage: 1000 MG, UNK
     Route: 042
  9. MANNITOL. [Concomitant]
     Active Substance: MANNITOL
     Indication: TOXICITY TO VARIOUS AGENTS
     Dosage: 1000 ML, DAILY (10 PROC.)
     Route: 042
     Dates: start: 2016

REACTIONS (10)
  - Sudden cardiac death [Recovered/Resolved]
  - Anaphylactic reaction [Recovered/Resolved]
  - Circulatory collapse [Recovering/Resolving]
  - Haemodynamic instability [Recovered/Resolved]
  - Hypomagnesaemia [Unknown]
  - Hypersensitivity [Recovered/Resolved]
  - Cardiotoxicity [Recovered/Resolved]
  - Toxicity to various agents [Unknown]
  - Cardio-respiratory arrest [Recovering/Resolving]
  - Drug interaction [Unknown]

NARRATIVE: CASE EVENT DATE: 2016
